FAERS Safety Report 6170966-0 (Version None)
Quarter: 2009Q2

REPORT INFORMATION
  Report Type: 
  Country: None (occurrence: None)
  Receive Date: 20090427
  Receipt Date: 20090427
  Transmission Date: 20091009
  Serious: Yes (Disabling, Other)
  Sender: FDA-Public Use
  Company Number: None

PATIENT
  Sex: Female
  Weight: 65.7716 kg

DRUGS (2)
  1. TOPIRAMATE [Suspect]
     Indication: HEADACHE
     Dosage: TOPIRAMATE 25 MG 1 TAB DAILY ORAL
     Route: 048
     Dates: start: 20090404
  2. NUVARING [Concomitant]

REACTIONS (2)
  - BLINDNESS [None]
  - MYOPIA [None]
